FAERS Safety Report 14325094 (Version 1)
Quarter: 2017Q4

REPORT INFORMATION
  Report Type: Spontaneous
  Country: US (occurrence: US)
  Receive Date: 20171223
  Receipt Date: 20171223
  Transmission Date: 20180321
  Serious: Yes (Hospitalization)
  Sender: FDA-Public Use
  Company Number: None

PATIENT
  Age: 46 Year
  Sex: Female
  Weight: 113 kg

DRUGS (1)
  1. EMPAGLIFLOZIN [Suspect]
     Active Substance: EMPAGLIFLOZIN

REACTIONS (6)
  - Asthenia [None]
  - Decreased appetite [None]
  - Malaise [None]
  - Lethargy [None]
  - Diabetic ketoacidosis [None]
  - Dizziness [None]

NARRATIVE: CASE EVENT DATE: 20171222
